FAERS Safety Report 6406718-3 (Version None)
Quarter: 2009Q4

REPORT INFORMATION
  Report Type: 
  Country: None (occurrence: None)
  Receive Date: 20091020
  Receipt Date: 20091012
  Transmission Date: 20100525
  Serious: Yes (Other)
  Sender: FDA-Public Use
  Company Number: US-ELI_LILLY_AND_COMPANY-US200908003359

PATIENT
  Sex: Female
  Weight: 118 kg

DRUGS (23)
  1. HUMALOG [Suspect]
     Indication: TYPE 1 DIABETES MELLITUS
     Dosage: UNK, AS NEEDED
  2. HUMALOG [Suspect]
  3. NOVOLOG [Concomitant]
  4. LEVEMIR [Concomitant]
     Dosage: 26 U, EACH MORNING
  5. LEVEMIR [Concomitant]
     Dosage: 28 U, EACH EVENING
  6. LYRICA [Concomitant]
     Dosage: 50 MG, 3/D
  7. MAXALT /USA/ [Concomitant]
     Indication: MIGRAINE
  8. EFFEXOR [Concomitant]
  9. LOVASTATIN [Concomitant]
  10. TRAZODONE [Concomitant]
     Dosage: 200 MG, OTHER
  11. ZYRTEC [Concomitant]
  12. SINGULAIR [Concomitant]
     Dosage: 10 MG, DAILY (1/D)
  13. LEVOXYL [Concomitant]
     Dosage: 137 UG, DAILY (1/D)
  14. XOPENEX [Concomitant]
  15. DILANTIN [Concomitant]
  16. ASPIRIN [Concomitant]
     Dosage: 81 MG, UNKNOWN
  17. ADVAIR DISKUS 100/50 [Concomitant]
  18. MULTI-VITAMIN [Concomitant]
  19. CALCIUM [Concomitant]
  20. SIMVASTATIN [Concomitant]
     Dosage: 10 MG, DAILY (1/D)
  21. CELEXA [Concomitant]
     Dosage: 40 MG, DAILY (1/D)
  22. BENICAR [Concomitant]
     Dosage: 40 MG, DAILY (1/D)
  23. ALBUTEROL [Concomitant]
     Dosage: UNK, AS NEEDED

REACTIONS (14)
  - BLOOD GLUCOSE INCREASED [None]
  - CONVULSION [None]
  - DRUG INEFFECTIVE [None]
  - DYSARTHRIA [None]
  - FAECAL INCONTINENCE [None]
  - FEELING ABNORMAL [None]
  - GAIT DISTURBANCE [None]
  - GLYCOSYLATED HAEMOGLOBIN INCREASED [None]
  - HEMIPLEGIA [None]
  - HYPOGLYCAEMIC SEIZURE [None]
  - MUSCULAR WEAKNESS [None]
  - RENAL FAILURE [None]
  - TONIC CONVULSION [None]
  - TRANSIENT ISCHAEMIC ATTACK [None]
